FAERS Safety Report 4639759-7 (Version None)
Quarter: 2005Q2

REPORT INFORMATION
  Report Type: 
  Country: None (occurrence: None)
  Receive Date: 20050420
  Receipt Date: 20050304
  Transmission Date: 20051028
  Serious: Yes (Hospitalization)
  Sender: FDA-Public Use
  Company Number: HQWYE878808MAR05

PATIENT
  Sex: Male
  Weight: 50 kg

DRUGS (10)
  1. ENBREL [Suspect]
     Indication: ANKYLOSING SPONDYLITIS
     Dosage: 3 INJECTIONS WEEKLY
     Route: 058
     Dates: start: 20050201, end: 20050220
  2. HYDROCHLOROTHIAZIDE [Concomitant]
  3. BISOPROLOL FUMARATE [Concomitant]
  4. RISEDRONATE SODIUM [Concomitant]
  5. CALCIUM CARBONATE [Concomitant]
  6. COLECALCIFEROL [Concomitant]
  7. SULFASALAZINE [Concomitant]
  8. DEXTROPROPOXYPHENE [Concomitant]
  9. PIROXICAM [Concomitant]
  10. OMEPRAZOLE [Concomitant]

REACTIONS (1)
  - HEMIPARESIS [None]
